FAERS Safety Report 6173892-6 (Version None)
Quarter: 2009Q2

REPORT INFORMATION
  Report Type: 
  Country: None (occurrence: None)
  Receive Date: 20090430
  Receipt Date: 20090427
  Transmission Date: 20091009
  Serious: Yes (Other)
  Sender: FDA-Public Use
  Company Number: CA-ALLERGAN-0900674US

PATIENT
  Sex: Female
  Weight: 54.422 kg

DRUGS (5)
  1. BOTOX [Suspect]
     Indication: MEIGE'S SYNDROME
     Dosage: 230 UNITS, SINGLE
     Route: 030
     Dates: start: 20080923, end: 20080923
  2. BOTOX [Suspect]
     Dosage: UNK, SINGLE
     Dates: start: 20070531, end: 20070531
  3. BOTOX [Suspect]
     Dosage: 10 UNITS, SINGLE
     Route: 030
     Dates: start: 20090122, end: 20090122
  4. BOTOX [Suspect]
     Dosage: 230 UNITS, SINGLE
     Route: 030
     Dates: start: 20090324, end: 20090324
  5. CLONAZEPAM [Concomitant]
     Dosage: 1 MG, TID

REACTIONS (4)
  - APHASIA [None]
  - DYSPHAGIA [None]
  - TONGUE PARALYSIS [None]
  - WEIGHT DECREASED [None]
